FAERS Safety Report 14225112 (Version 1)
Quarter: 2017Q4

REPORT INFORMATION
  Report Type: Report from Study
  Country: US (occurrence: US)
  Receive Date: 20171127
  Receipt Date: 20171127
  Transmission Date: 20180321
  Serious: Yes (Death, Other)
  Sender: FDA-Public Use
  Company Number: US-ROCHE-1784369

PATIENT

DRUGS (1)
  1. ALTEPLASE. [Suspect]
     Active Substance: ALTEPLASE
     Indication: ISCHAEMIC STROKE
     Route: 042

REACTIONS (9)
  - Cerebral infarction [Unknown]
  - Embolic stroke [Unknown]
  - Cytomegalovirus infection [Unknown]
  - Brain oedema [Unknown]
  - Haemorrhage intracranial [Unknown]
  - Death [Fatal]
  - Cerebral haemorrhage [Fatal]
  - Ischaemic stroke [Unknown]
  - Haemorrhage [Unknown]
